FAERS Safety Report 7105525-6 (Version None)
Quarter: 2010Q4

REPORT INFORMATION
  Report Type: 
  Country: None (occurrence: None)
  Receive Date: 20101116
  Receipt Date: 20101108
  Transmission Date: 20110411
  Serious: Yes (Hospitalization)
  Sender: FDA-Public Use
  Company Number: BR-ROCHE-731986

PATIENT
  Sex: Female
  Weight: 53 kg

DRUGS (4)
  1. TOCILIZUMAB [Suspect]
     Indication: RHEUMATOID ARTHRITIS
     Dosage: INFUSION
     Route: 065
     Dates: start: 20100901, end: 20100901
  2. TOCILIZUMAB [Suspect]
     Route: 065
     Dates: start: 20101004, end: 20101004
  3. METICORTEN [Concomitant]
  4. AMYTRIL [Concomitant]

REACTIONS (5)
  - ARTHRALGIA [None]
  - BURNING SENSATION [None]
  - INCREASED BRONCHIAL SECRETION [None]
  - NAUSEA [None]
  - URINARY TRACT INFECTION [None]
